FAERS Safety Report 22593630 (Version 1)
Quarter: 2023Q2

REPORT INFORMATION
  Report Type: Spontaneous
  Country: US (occurrence: US)
  Receive Date: 20230613
  Receipt Date: 20230613
  Transmission Date: 20230721
  Serious: Yes (Hospitalization, Other)
  Sender: FDA-Public Use
  Company Number: US-AJANTA-2023AJA00120

PATIENT
  Age: 25 Year
  Sex: Male

DRUGS (3)
  1. RISPERIDONE [Suspect]
     Active Substance: RISPERIDONE
     Indication: Psychotic disorder
     Route: 048
  2. RISPERIDONE [Suspect]
     Active Substance: RISPERIDONE
     Route: 048
  3. RISPERIDONE [Suspect]
     Active Substance: RISPERIDONE
     Route: 048

REACTIONS (6)
  - Cytotoxic lesions of corpus callosum [Recovered/Resolved]
  - Hallucination, auditory [Recovered/Resolved]
  - Hyperhidrosis [Recovered/Resolved]
  - Psychotic disorder [Recovered/Resolved]
  - Musculoskeletal stiffness [Recovered/Resolved]
  - Photophobia [Recovered/Resolved]
